FAERS Safety Report 20013488 (Version 4)
Quarter: 2022Q1

REPORT INFORMATION
  Report Type: Spontaneous
  Country: IN (occurrence: IN)
  Receive Date: 20211029
  Receipt Date: 20220208
  Transmission Date: 20220423
  Serious: Yes (Death, Other)
  Sender: FDA-Public Use
  Company Number: IN-PFIZER INC-202101023718

PATIENT
  Age: 49 Year
  Sex: Male
  Weight: 78.3 kg

DRUGS (3)
  1. CRIZOTINIB [Suspect]
     Active Substance: CRIZOTINIB
     Indication: Metastatic renal cell carcinoma
     Dosage: 250 MG, 2X/DAY
     Route: 048
     Dates: start: 20210811
  2. CRIZOTINIB [Suspect]
     Active Substance: CRIZOTINIB
     Indication: ALK gene rearrangement positive
  3. ZOLEDRONIC ACID [Concomitant]
     Active Substance: ZOLEDRONIC ACID
     Dosage: UNK, MONTHLY
     Route: 042

REACTIONS (6)
  - Neoplasm progression [Fatal]
  - Malaria [Recovered/Resolved]
  - Dengue fever [Recovered/Resolved]
  - Hypotension [Unknown]
  - Pyrexia [Recovered/Resolved]
  - Asthenia [Unknown]
